FAERS Safety Report 9852956 (Version 4)
Quarter: 2014Q1

REPORT INFORMATION
  Report Type: Spontaneous
  Country: GB (occurrence: GB)
  Receive Date: 20140129
  Receipt Date: 20140310
  Transmission Date: 20141002
  Serious: Yes (Other)
  Sender: FDA-Public Use
  Company Number: GB-ACTAVIS-2014-00764

PATIENT
  Sex: Female

DRUGS (18)
  1. CETIRIZINE (UNKNOWN) [Suspect]
     Indication: URTICARIA CHRONIC
     Dosage: UNK
     Route: 065
  2. CETIRIZINE (UNKNOWN) [Suspect]
     Indication: ANGIOEDEMA
  3. CYCLOSPORINE (UNKNOWN) [Suspect]
     Indication: URTICARIA CHRONIC
     Dosage: 2.5 MG/KG, UNKNOWN
     Route: 065
  4. CYCLOSPORINE (UNKNOWN) [Suspect]
     Indication: ANGIOEDEMA
     Dosage: UNK
     Route: 065
  5. DAPSONE [Suspect]
     Indication: URTICARIA CHRONIC
     Dosage: 50 MG, 1/WEEK
     Route: 065
  6. DAPSONE (UNKNOWN) [Suspect]
     Indication: ANGIOEDEMA
     Dosage: UNK
     Route: 065
  7. FEXOFENADINE (UNKNOWN) [Suspect]
     Indication: URTICARIA CHRONIC
     Dosage: UNK
     Route: 065
  8. FEXOFENADINE (UNKNOWN) [Suspect]
     Indication: ANGIOEDEMA
  9. HYDROXYCHLOROQUINE SULFATE (WATSON LABORATORIES) [Suspect]
     Indication: URTICARIA CHRONIC
     Dosage: 200 MG, DAILY
     Route: 065
  10. HYDROXYCHLOROQUINE SULFATE (WATSON LABORATORIES) [Suspect]
     Indication: ANGIOEDEMA
     Dosage: 400 MG, DAILY
     Route: 065
  11. HYDROXYZINE (UNKNOWN) [Suspect]
     Indication: URTICARIA CHRONIC
     Dosage: UNK
     Route: 065
  12. HYDROXYZINE (UNKNOWN) [Suspect]
     Indication: ANGIOEDEMA
  13. LORATADINE (UNKNOWN) [Suspect]
     Indication: URTICARIA CHRONIC
     Dosage: UNK
     Route: 048
  14. LORATADINE (UNKNOWN) [Suspect]
     Indication: ANGIOEDEMA
  15. METHOTREXATE (UNKNOWN) [Suspect]
     Indication: URTICARIA CHRONIC
     Dosage: UNK
     Route: 048
  16. METHOTREXATE (UNKNOWN) [Suspect]
     Indication: ANGIOEDEMA
  17. PREDNISOLONE (UNKNOWN) [Suspect]
     Indication: URTICARIA CHRONIC
     Dosage: 40 MG, UNKNOWN;  25-40 MG PER WEEK FOR 2-3 WEEKS
     Route: 065
  18. PREDNISOLONE (UNKNOWN) [Suspect]
     Indication: ANGIOEDEMA
     Dosage: UNK
     Route: 065

REACTIONS (6)
  - Angioedema [Not Recovered/Not Resolved]
  - Urticaria [Not Recovered/Not Resolved]
  - Asthma [Not Recovered/Not Resolved]
  - Blood pressure increased [Unknown]
  - Drug effect incomplete [Not Recovered/Not Resolved]
  - Drug ineffective [Unknown]
